FAERS Safety Report 11678687 (Version 2)
Quarter: 2015Q4

REPORT INFORMATION
  Report Type: Spontaneous
  Country: US (occurrence: US)
  Receive Date: 20151027
  Receipt Date: 20151104
  Transmission Date: 20160304
  Serious: No
  Sender: FDA-Public Use
  Company Number: US-ELI_LILLY_AND_COMPANY-US201007004734

PATIENT
  Age: 69 Year
  Sex: Female

DRUGS (11)
  1. ARMOUR THYROID [Concomitant]
     Active Substance: THYROID, PORCINE\THYROID, UNSPECIFIED
  2. FORTEO [Suspect]
     Active Substance: TERIPARATIDE
     Dosage: 20 UG, DAILY (1/D)
  3. OSCAL [Concomitant]
     Active Substance: CALCIUM CARBONATE
  4. FORTEO [Suspect]
     Active Substance: TERIPARATIDE
     Dosage: 20 UG, QD
  5. FORTEO [Suspect]
     Active Substance: TERIPARATIDE
     Dosage: 20 UG, DAILY (1/D)
     Dates: start: 20090801
  6. FORTEO [Suspect]
     Active Substance: TERIPARATIDE
     Indication: OSTEOPOROSIS
     Dosage: 20 UG, DAILY (1/D)
     Dates: start: 200906
  7. FORTEO [Suspect]
     Active Substance: TERIPARATIDE
     Dosage: 20 UG, QD
  8. FORTEO [Suspect]
     Active Substance: TERIPARATIDE
     Dosage: 20 UG, QD
     Dates: end: 20110730
  9. CALCIUM [Concomitant]
     Active Substance: CALCIUM
  10. CALCIUM CITRATE [Concomitant]
     Active Substance: CALCIUM CITRATE
  11. LEVOTHYROXINE. [Concomitant]
     Active Substance: LEVOTHYROXINE
     Dosage: UNK, UNKNOWN

REACTIONS (17)
  - Blood thyroid stimulating hormone increased [Unknown]
  - Dental caries [Unknown]
  - Tooth injury [Unknown]
  - Bone disorder [Unknown]
  - Arthropathy [Unknown]
  - Headache [Unknown]
  - Fall [Unknown]
  - Facial bones fracture [Unknown]
  - Oral surgery [Unknown]
  - Dental operation [Unknown]
  - Tooth extraction [Unknown]
  - Pain [Unknown]
  - Head injury [Not Recovered/Not Resolved]
  - Erythema [Unknown]
  - Tooth disorder [Unknown]
  - Hypocalcaemia [Unknown]
  - Hypercalcaemia [Recovered/Resolved]

NARRATIVE: CASE EVENT DATE: 200906
